FAERS Safety Report 14012074 (Version 4)
Quarter: 2017Q4

REPORT INFORMATION
  Report Type: Report from Study
  Country: AR (occurrence: AR)
  Receive Date: 20170926
  Receipt Date: 20171110
  Transmission Date: 20180321
  Serious: Yes (Hospitalization, Other)
  Sender: FDA-Public Use
  Company Number: PHHY2017AR132087

PATIENT
  Age: 72 Year
  Sex: Female

DRUGS (4)
  1. SINTROM [Suspect]
     Active Substance: ACENOCOUMAROL
     Indication: PRODUCT USED FOR UNKNOWN INDICATION
     Route: 065
  2. AFINITOR [Suspect]
     Active Substance: EVEROLIMUS
     Indication: BREAST CANCER
     Dosage: 10 MG, QD
     Route: 065
     Dates: start: 20170130, end: 20170831
  3. AROMASIN [Concomitant]
     Active Substance: EXEMESTANE
     Indication: PRODUCT USED FOR UNKNOWN INDICATION
     Dosage: 25 MG
     Route: 065
  4. AROMASIN [Concomitant]
     Active Substance: EXEMESTANE
     Dosage: 25 MG
     Route: 065

REACTIONS (19)
  - Anaemia [Recovering/Resolving]
  - Fatigue [Not Recovered/Not Resolved]
  - Complication associated with device [Unknown]
  - Malaise [Not Recovered/Not Resolved]
  - Lung disorder [Unknown]
  - Skin lesion [Unknown]
  - Device occlusion [Unknown]
  - Chills [Unknown]
  - Fall [Recovered/Resolved]
  - Tremor [Unknown]
  - Thrombosis in device [Unknown]
  - Bone marrow disorder [Unknown]
  - Diabetes mellitus [Unknown]
  - Blood glucose increased [Unknown]
  - Red blood cell count decreased [Unknown]
  - Fear of injection [Unknown]
  - Pyrexia [Unknown]
  - Medical device site swelling [Unknown]
  - Haematocrit decreased [Not Recovered/Not Resolved]

NARRATIVE: CASE EVENT DATE: 201704
